FAERS Safety Report 24888848 (Version 1)
Quarter: 2025Q1

REPORT INFORMATION
  Report Type: Spontaneous
  Country: US (occurrence: None)
  Receive Date: 20250124
  Receipt Date: 20250124
  Transmission Date: 20250408
  Serious: Yes (Hospitalization)
  Sender: FDA-CTU
  Company Number: None

PATIENT
  Sex: Female

DRUGS (2)
  1. GAMMAGARD LIQUID [Suspect]
     Active Substance: HUMAN IMMUNOGLOBULIN G
     Dosage: OTHER STRENGTH : 5GM/50ML;?FREQUENCY : MONTHLY;?
     Route: 042
     Dates: start: 202202
  2. GAMMAGARD LIQUID [Suspect]
     Active Substance: HUMAN IMMUNOGLOBULIN G
     Dosage: OTHER STRENGTH : 20GM/200M ;?FREQUENCY : MONTHLY;?
     Route: 042
     Dates: start: 202202

REACTIONS (1)
  - Pneumonia [None]
